FAERS Safety Report 6806096-1 (Version None)
Quarter: 2010Q2

REPORT INFORMATION
  Report Type: 
  Country: None (occurrence: None)
  Receive Date: 20100629
  Receipt Date: 20100623
  Transmission Date: 20101027
  Serious: Yes (Other)
  Sender: FDA-Public Use
  Company Number: AR-AMGEN-KDC396031

PATIENT
  Sex: Female

DRUGS (6)
  1. DENOSUMAB [Suspect]
     Indication: METASTASES TO BONE
     Route: 058
     Dates: start: 20090803
  2. CLINDAMYCIN [Concomitant]
     Route: 048
     Dates: start: 20090916, end: 20090920
  3. NAPROXEN [Concomitant]
     Route: 048
     Dates: start: 20090916, end: 20090920
  4. CHLORHEXIDINE [Concomitant]
     Dates: start: 20090501
  5. CELESTONE [Concomitant]
     Route: 030
     Dates: start: 20090916
  6. UNSPECIFIED HORMONE REPLACEMENT THERAPY AGENT [Concomitant]
     Dates: start: 20010703

REACTIONS (1)
  - OSTEONECROSIS OF JAW [None]
